FAERS Safety Report 9587044 (Version 2)
Quarter: 2013Q4

REPORT INFORMATION
  Report Type: Spontaneous
  Country: DE (occurrence: DE)
  Receive Date: 20131003
  Receipt Date: 20131028
  Transmission Date: 20140711
  Serious: Yes (Other)
  Sender: FDA-Public Use
  Company Number: DE-ROCHE-1284127

PATIENT
  Age: 53 Year
  Sex: Female
  Weight: 68 kg

DRUGS (6)
  1. RITUXIMAB [Suspect]
     Indication: RHEUMATOID ARTHRITIS
     Route: 042
     Dates: start: 20130809
  2. RITUXIMAB [Suspect]
     Route: 042
     Dates: start: 20130823
  3. TAVEGIL [Concomitant]
     Route: 042
     Dates: start: 20130809
  4. RANITIDIN [Concomitant]
     Route: 042
     Dates: start: 20130809
  5. PREDNISOLON [Concomitant]
     Route: 042
     Dates: start: 20130809
  6. NACL .9% [Concomitant]
     Dosage: 0.9% NACL
     Route: 042
     Dates: start: 20130809

REACTIONS (3)
  - Chills [Recovered/Resolved]
  - Throat tightness [Recovered/Resolved]
  - Nausea [Recovered/Resolved]
